FAERS Safety Report 9843643 (Version 1)
Quarter: 2013Q4

REPORT INFORMATION
  Report Type: Spontaneous
  Country: US (occurrence: None)
  Receive Date: 20131223
  Receipt Date: 20131223
  Transmission Date: 20140711
  Serious: No
  Sender: FDA-Public Use
  Company Number: 221436LEO

PATIENT
  Age: 73 Year
  Sex: Male

DRUGS (6)
  1. PICATO [Suspect]
     Indication: ACTINIC KERATOSIS
     Route: 061
     Dates: start: 20130425
  2. ALLOPURINOL (ALLOPURINOL) [Concomitant]
  3. COLCRYS (COLCHICINE) [Concomitant]
  4. AMILORIDE (AMILORIDE) [Concomitant]
  5. SERTRALINE (SERTRALINE) [Concomitant]
  6. OMEPRAZOLE (OMEPRAZOLE) [Concomitant]

REACTIONS (2)
  - Application site pain [None]
  - Off label use [None]
